FAERS Safety Report 13120494 (Version 1)
Quarter: 2017Q1

REPORT INFORMATION
  Report Type: Spontaneous
  Country: CA (occurrence: CA)
  Receive Date: 20170117
  Receipt Date: 20170117
  Transmission Date: 20170428
  Serious: Yes (Other)
  Sender: FDA-Public Use
  Company Number: CA-STRIDES ARCOLAB LIMITED-2017SP000359

PATIENT

DRUGS (1)
  1. TACROLIMUS. [Suspect]
     Active Substance: TACROLIMUS
     Indication: LIVER TRANSPLANT
     Dosage: UNK

REACTIONS (3)
  - Hypomagnesaemia [Recovered/Resolved]
  - Mutism [Recovered/Resolved]
  - Catatonia [Recovered/Resolved]
